FAERS Safety Report 6657016-4 (Version None)
Quarter: 2010Q1

REPORT INFORMATION
  Report Type: 
  Country: None (occurrence: None)
  Receive Date: 20100329
  Receipt Date: 20100329
  Transmission Date: 20100710
  Serious: No
  Sender: FDA-Public Use
  Company Number: None

PATIENT

DRUGS (5)
  1. CETIRIZINE HCL [Suspect]
     Dosage: PO
     Route: 048
  2. SINGULAIR [Concomitant]
  3. ASTELIN [Concomitant]
  4. VERAMYST [Concomitant]
  5. ZYRTEC [Concomitant]

REACTIONS (4)
  - CONDITION AGGRAVATED [None]
  - ECZEMA [None]
  - PRODUCT MEASURED POTENCY ISSUE [None]
  - PRODUCT SUBSTITUTION ISSUE [None]
